FAERS Safety Report 9727554 (Version 2)
Quarter: 2014Q1

REPORT INFORMATION
  Report Type: Spontaneous
  Country: US (occurrence: US)
  Receive Date: 20131203
  Receipt Date: 20140109
  Transmission Date: 20141002
  Serious: Yes (Hospitalization, Other)
  Sender: FDA-Public Use
  Company Number: US-B.I. PHARMACEUTICALS,INC./RIDGEFIELD-2013-BI-40009BP

PATIENT
  Age: 76 Year
  Sex: Male
  Weight: 78.02 kg

DRUGS (4)
  1. PRADAXA [Suspect]
     Indication: ATRIAL FIBRILLATION
     Dosage: 300 MG
     Route: 048
     Dates: start: 20101207, end: 20101210
  2. TRAMADOL [Concomitant]
     Dosage: 150 MG
     Route: 048
  3. PERCOCET [Concomitant]
  4. VITAMIN B12 [Concomitant]

REACTIONS (6)
  - Lower gastrointestinal haemorrhage [Recovered/Resolved]
  - Coagulopathy [Unknown]
  - Hepatic encephalopathy [Recovered/Resolved]
  - Ventricular tachycardia [Recovered/Resolved]
  - Lobar pneumonia [Unknown]
  - Bloody discharge [Unknown]
